FAERS Safety Report 9526940 (Version 1)
Quarter: 2013Q1

REPORT INFORMATION
  Report Type: Spontaneous
  Country: US (occurrence: None)
  Receive Date: 20130305
  Receipt Date: 20130305
  Transmission Date: 20140127
  Serious: Yes (Other)
  Sender: FDA-Public Use
  Company Number: 163-21880-11121816

PATIENT
  Age: 79 Year
  Sex: Female

DRUGS (10)
  1. REVLIMID LENALIDOMIDE 10 MILLIGRAM, CAPSULES [Suspect]
     Indication: PLASMA CELL MYELOMA
     Dosage: 10 MG, 1 IN 1 D, PO
     Route: 048
     Dates: start: 20080609
  2. DIOVAN VALSARTAN [Concomitant]
  3. ATENOLOL ATENOLOL [Concomitant]
  4. NORVASC AMLODIPINE BISILATE [Concomitant]
  5. LEXAPRO ESCITALOPRAM OXALATE [Concomitant]
  6. TEKTURNA ALISKIREN [Concomitant]
  7. ACTOS PIOGLITAZONE [Concomitant]
  8. DECADRON DEXAMETHASONE [Concomitant]
  9. ASPIRIN ACETYLSALICYLIC ACID [Concomitant]
  10. LISINOPRIL [Concomitant]

REACTIONS (5)
  - Bronchitis [None]
  - Osteolysis [None]
  - Sleep disorder [None]
  - Sinusitis [None]
  - Fatigue [None]
